FAERS Safety Report 9626206 (Version 1)
Quarter: 2013Q4

REPORT INFORMATION
  Report Type: Spontaneous
  Country: GB (occurrence: GB)
  Receive Date: 20131016
  Receipt Date: 20131016
  Transmission Date: 20140711
  Serious: Yes (Other)
  Sender: FDA-Public Use
  Company Number: GB-PFIZER INC-2013293157

PATIENT
  Sex: 0

DRUGS (1)
  1. SUNITINIB MALATE [Suspect]
     Indication: NEOPLASM MALIGNANT

REACTIONS (3)
  - Hepatic cirrhosis [Unknown]
  - Disease progression [Unknown]
  - Neoplasm malignant [Unknown]
